FAERS Safety Report 4422955-1 (Version None)
Quarter: 2004Q3

REPORT INFORMATION
  Report Type: 
  Country: None (occurrence: None)
  Receive Date: 20040806
  Receipt Date: 20040726
  Transmission Date: 20050211
  Serious: Yes (Hospitalization)
  Sender: FDA-Public Use
  Company Number: US-JNJFOC-20040707029

PATIENT
  Age: 39 Year
  Sex: Female

DRUGS (6)
  1. INFLIXIMAB (INFLIXIMAB, RECOMBINANT) LYOPHILIZED POWDER [Suspect]
     Indication: RHEUMATOID ARTHRITIS
     Dosage: 1 IN 6 WEEKS, INTRAVENOUS
     Route: 042
     Dates: start: 20010504
  2. METHOTREXATE [Concomitant]
  3. LEUCOVORIN CALCIUM [Concomitant]
  4. DAYPRO [Concomitant]
  5. ASPIRIN [Concomitant]
  6. BIRTH CONTROL (ORAL CONTRACEPTIVE NOS) [Concomitant]

REACTIONS (2)
  - MIGRAINE [None]
  - VISUAL DISTURBANCE [None]
